FAERS Safety Report 26140305 (Version 1)
Quarter: 2025Q4

REPORT INFORMATION
  Report Type: Report from Study
  Country: EU (occurrence: EU)
  Receive Date: 20251210
  Receipt Date: 20251210
  Transmission Date: 20260118
  Serious: Yes (Other)
  Sender: ABBVIE
  Company Number: EU-ABBVIE-6569687

PATIENT
  Age: 56 Year
  Sex: Female

DRUGS (2)
  1. FOSCARBIDOPA\FOSLEVODOPA [Suspect]
     Active Substance: FOSCARBIDOPA\FOSLEVODOPA
     Indication: Parkinson^s disease
     Dosage: 240MG/ML OF FOSLEVODOPA + 12 MG/ML OF FOSCARBIDOPA?LOADING 1.2 ML; HIGH 0.42, BASE 0.34 AND LOW 0...
     Route: 058
     Dates: start: 20250312, end: 2025
  2. FOSCARBIDOPA\FOSLEVODOPA [Suspect]
     Active Substance: FOSCARBIDOPA\FOSLEVODOPA
     Dosage: 240 MG OF FOSLEVODOPA + 120 MG OF FOSCARBIDOPA.?LOADING DOSE 1.2ML; HIGH 0.42 ML/H, BASE 0.33 ML/...
     Route: 058
     Dates: start: 202509

REACTIONS (5)
  - Catheter site warmth [Recovered/Resolved]
  - Infusion site erythema [Recovered/Resolved]
  - Puncture site pain [Recovering/Resolving]
  - Puncture site swelling [Recovered/Resolved]
  - Puncture site discharge [Recovered/Resolved]

NARRATIVE: CASE EVENT DATE: 20251124
